FAERS Safety Report 19728359 (Version 1)
Quarter: 2021Q3

REPORT INFORMATION
  Report Type: Spontaneous
  Country: AT (occurrence: AT)
  Receive Date: 20210820
  Receipt Date: 20210820
  Transmission Date: 20211014
  Serious: Yes (Other)
  Sender: FDA-Public Use
  Company Number: AT-ALVOGEN-2021-ALVOGEN-117351

PATIENT
  Age: 45 Year
  Sex: Male

DRUGS (5)
  1. PALIPERIDONE PALMITATE [Suspect]
     Active Substance: PALIPERIDONE PALMITATE
     Indication: SCHIZOPHRENIA
     Dosage: DAY 24: 156 MG, UNK
     Route: 065
  2. LACTATED RINGERS SOLUTION [Concomitant]
     Active Substance: CALCIUM CHLORIDE\POTASSIUM CHLORIDE\SODIUM CHLORIDE\SODIUM LACTATE
     Indication: PROPHYLAXIS
     Dosage: UNK UNK, QD
     Route: 042
  3. LISINOPRIL AND HYDROCHLOROTHIAZIDE [Suspect]
     Active Substance: HYDROCHLOROTHIAZIDE\LISINOPRIL
     Indication: ESSENTIAL HYPERTENSION
     Route: 048
  4. PROTHIPENDYL [Suspect]
     Active Substance: PROTHIPENDYL
     Indication: SLEEP DISORDER
     Dosage: 80 MG, UNKNOWN, DAY 9
     Route: 065
  5. RISPERIDONE. [Concomitant]
     Active Substance: RISPERIDONE
     Indication: SCHIZOPHRENIA
     Route: 048

REACTIONS (1)
  - Rhabdomyolysis [Recovered/Resolved]
